FAERS Safety Report 17974286 (Version 9)
Quarter: 2021Q3

REPORT INFORMATION
  Report Type: Spontaneous
  Country: US (occurrence: US)
  Receive Date: 20200702
  Receipt Date: 20210702
  Transmission Date: 20211014
  Serious: Yes (Hospitalization, Other)
  Sender: FDA-Public Use
  Company Number: US-PFIZER INC-2020254080

PATIENT
  Age: 76 Year
  Sex: Female

DRUGS (5)
  1. ARICEPT [Concomitant]
     Active Substance: DONEPEZIL HYDROCHLORIDE
     Dosage: UNK
  2. CYMBALTA [Concomitant]
     Active Substance: DULOXETINE HYDROCHLORIDE
  3. XELJANZ [Suspect]
     Active Substance: TOFACITINIB CITRATE
     Indication: COLITIS ULCERATIVE
     Dosage: 5 MG, 2X/DAY
     Route: 048
     Dates: start: 202005
  4. PREDNISONE. [Concomitant]
     Active Substance: PREDNISONE
     Dosage: UNK
  5. XELJANZ [Suspect]
     Active Substance: TOFACITINIB CITRATE
     Indication: COLITIS ULCERATIVE
     Dosage: 10 MG, 2X/DAY
     Route: 048
     Dates: start: 202005

REACTIONS (11)
  - Diarrhoea [Recovered/Resolved]
  - Discouragement [Unknown]
  - Depression [Unknown]
  - Upper limb fracture [Unknown]
  - Urinary tract infection [Unknown]
  - Confusional state [Unknown]
  - Memory impairment [Recovering/Resolving]
  - Product dose omission issue [Unknown]
  - Constipation [Recovered/Resolved]
  - Condition aggravated [Recovered/Resolved]
  - Fall [Unknown]
